FAERS Safety Report 19900822 (Version 1)
Quarter: 2021Q3

REPORT INFORMATION
  Report Type: Spontaneous
  Country: IT (occurrence: IT)
  Receive Date: 20210930
  Receipt Date: 20210930
  Transmission Date: 20211014
  Serious: Yes (Hospitalization)
  Sender: FDA-Public Use
  Company Number: IT-TEVA-2021-IT-1957979

PATIENT
  Age: 4 Year
  Sex: Male

DRUGS (5)
  1. CARBOPLATIN. [Suspect]
     Active Substance: CARBOPLATIN
     Indication: ASTROCYTOMA
     Dosage: 333.5 MG
     Route: 042
     Dates: start: 20210527, end: 20210527
  2. ANTRA [Concomitant]
     Active Substance: OMEPRAZOLE
     Dosage: 15 MG
     Route: 048
  3. ZOFRAN [Concomitant]
     Active Substance: ONDANSETRON HYDROCHLORIDE
     Dosage: 8 MG
     Route: 042
  4. TRIMETHOPRIM. [Concomitant]
     Active Substance: TRIMETHOPRIM
     Dosage: 8 MG
     Route: 042
  5. FLEBOCORTID RICHTER [Concomitant]
     Indication: HYPERSENSITIVITY
     Dosage: 150 MG
     Route: 042
     Dates: start: 20210527, end: 20210527

REACTIONS (2)
  - Pyrexia [Recovering/Resolving]
  - Headache [Recovering/Resolving]

NARRATIVE: CASE EVENT DATE: 20210528
